FAERS Safety Report 16557747 (Version 1)
Quarter: 2019Q3

REPORT INFORMATION
  Report Type: Spontaneous
  Country: FR (occurrence: FR)
  Receive Date: 20190711
  Receipt Date: 20190711
  Transmission Date: 20191004
  Serious: Yes (Hospitalization)
  Sender: FDA-Public Use
  Company Number: FR-MYLANLABS-2019M1063196

PATIENT
  Age: 53 Year
  Sex: Female
  Weight: 50 kg

DRUGS (16)
  1. METHYLPREDNISOLONE MYLAN 1 G [Suspect]
     Active Substance: METHYLPREDNISOLONE
     Indication: HODGKIN^S DISEASE STAGE IV
     Dosage: ? J1 DES CYCLES
     Route: 042
     Dates: start: 20160816
  2. NATULAN [Suspect]
     Active Substance: PROCARBAZINE HYDROCHLORIDE
     Indication: HODGKIN^S DISEASE STAGE IV
     Dosage: 150 MG, ONCE A DAY
     Route: 048
     Dates: start: 20160816
  3. ONDANSETRON MYLAN 8 MG, COMPRIM? ORODISPERSIBLE [Suspect]
     Active Substance: ONDANSETRON HYDROCHLORIDE
     Indication: PROPHYLAXIS OF NAUSEA AND VOMITING
     Dosage: AT DAY 1, 2 AND 3
     Route: 048
     Dates: start: 20160816
  4. ETOPOSIDE MYLAN 20 MG/ML, SOLUTION ? DILUER POUR PERFUSION [Suspect]
     Active Substance: ETOPOSIDE
     Indication: HODGKIN^S DISEASE STAGE IV
     Dosage: (UNIT DOSE: 20 MG/ML) AT DAY 1, 2 AND 3 EVERY 20 DAYS (310 MG)
     Route: 042
     Dates: start: 20160816
  5. CORTANCYL [Suspect]
     Active Substance: PREDNISONE
     Indication: HODGKIN^S DISEASE STAGE IV
     Dosage: 60 MG (60 MG ONCE A DAY)
     Route: 048
     Dates: start: 20160817
  6. ZELITREX [Concomitant]
     Active Substance: VALACYCLOVIR HYDROCHLORIDE
     Indication: ANTIVIRAL PROPHYLAXIS
     Dosage: TWO TABLETS A DAY
     Route: 048
     Dates: start: 20160816
  7. OFLOXACINE [Concomitant]
     Active Substance: OFLOXACIN
     Indication: ANTIBIOTIC PROPHYLAXIS
     Dosage: 200 MG TWICE A DAY
     Route: 048
     Dates: start: 20160810
  8. INEXIUM                            /01479302/ [Concomitant]
     Active Substance: ESOMEPRAZOLE MAGNESIUM
     Indication: PRODUCT USED FOR UNKNOWN INDICATION
     Dosage: ONE DOSAGE FORM ONCE A DAY
  9. UROMITEXAN [Suspect]
     Active Substance: MESNA
     Indication: PROPHYLAXIS URINARY TRACT INFECTION
     Dosage: PUIS 3000 MG PAR VOIE ORALE
     Route: 042
     Dates: start: 20160816
  10. DIFFU K [Concomitant]
     Active Substance: POTASSIUM CHLORIDE
     Dosage: TWO DOSAGE FORMS ONCE A DAY
  11. BACTRIM [Concomitant]
     Active Substance: SULFAMETHOXAZOLE\TRIMETHOPRIM
     Indication: ANTIBIOTIC PROPHYLAXIS
     Dosage: 1 LUNDI, 1 MARDI, 1 VENDREDI
     Route: 048
     Dates: start: 20160817
  12. EFFEXOR [Concomitant]
     Active Substance: VENLAFAXINE HYDROCHLORIDE
     Indication: PRODUCT USED FOR UNKNOWN INDICATION
     Dosage: ONE DOSAGE FORM IN THE MORNING AND HALF OF A DOSAGE FORM AT MIDDAY
  13. DOXORUBICINE TEVA [Suspect]
     Active Substance: DOXORUBICIN
     Indication: HODGKIN^S DISEASE STAGE IV
     Dosage: AT DAY 1, 2 AND 3 EVERY 28 DAYS (52 MG)
     Route: 042
     Dates: start: 20160816
  14. EMEND [Suspect]
     Active Substance: APREPITANT
     Indication: PROPHYLAXIS OF NAUSEA AND VOMITING
     Dosage: AT DAY 1, 2 AND 3 OF CYCLE EVERY 28 DAYS
     Route: 048
     Dates: start: 20160816
  15. ENDOXAN                            /00021101/ [Suspect]
     Active Substance: CYCLOPHOSPHAMIDE
     Indication: HODGKIN^S DISEASE STAGE IV
     Dosage: 1880 MG ONCE EVERY 28 DAYS
     Route: 042
     Dates: start: 20160816
  16. XANAX [Concomitant]
     Active Substance: ALPRAZOLAM
     Dosage: ONE DOSAGE FORM TWICE A DAY

REACTIONS (1)
  - Rash maculo-papular [Recovered/Resolved]

NARRATIVE: CASE EVENT DATE: 20160818
